FAERS Safety Report 9391748 (Version 1)
Quarter: 2013Q3

REPORT INFORMATION
  Report Type: Spontaneous
  Country: GB (occurrence: GB)
  Receive Date: 20130709
  Receipt Date: 20130709
  Transmission Date: 20140515
  Serious: Yes (Other)
  Sender: FDA-Public Use
  Company Number: GB-BAYER-2013-079761

PATIENT
  Age: 76 Year
  Sex: Female

DRUGS (2)
  1. ACETYLSALICYLIC ACID({=100 MG) [Suspect]
     Indication: MYOCARDIAL ISCHAEMIA
  2. CLOPIDOGREL [Concomitant]
     Indication: MYOCARDIAL ISCHAEMIA

REACTIONS (1)
  - Vascular pseudoaneurysm [Recovered/Resolved]
